FAERS Safety Report 18273016 (Version 1)
Quarter: 2020Q3

REPORT INFORMATION
  Report Type: Spontaneous
  Country: US (occurrence: US)
  Receive Date: 20200525
  Receipt Date: 20200525
  Transmission Date: 20201103
  Serious: No
  Sender: FDA-Public Use
  Company Number: None

PATIENT
  Age: 2 Decade
  Sex: Male

DRUGS (3)
  1. AZITHROMYCIN ANHYDROUS. [Suspect]
     Active Substance: AZITHROMYCIN ANHYDROUS
     Indication: COVID-19
     Route: 042
  2. LOPINAVIR?RITONAVIR [Suspect]
     Active Substance: LOPINAVIR\RITONAVIR
     Indication: COVID-19
     Route: 048
  3. INTERFERON [Suspect]
     Active Substance: INTERFERON
     Indication: COVID-19
     Dosage: ?          OTHER DOSE:1,000.000IU ;?
     Route: 055
     Dates: start: 2020

REACTIONS (2)
  - Off label use [None]
  - Respiratory tract infection [None]
